FAERS Safety Report 4411824-9 (Version None)
Quarter: 2004Q3

REPORT INFORMATION
  Report Type: 
  Country: None (occurrence: None)
  Receive Date: 20040729
  Receipt Date: 20040729
  Transmission Date: 20050211
  Serious: Yes (Death)
  Sender: FDA-Public Use
  Company Number: None

PATIENT
  Age: 75 Year
  Sex: Female
  Weight: 50.8029 kg

DRUGS (2)
  1. IOBENGUANE SULFATE I 131 [Suspect]
     Indication: PHAEOCHROMOCYTOMA
     Dosage: 10.2 MCI IV OVER 30 SEC
     Route: 042
     Dates: start: 20040722
  2. SSKI [Concomitant]

REACTIONS (4)
  - BLOOD PRESSURE DECREASED [None]
  - BLOOD PRESSURE INCREASED [None]
  - NAUSEA [None]
  - VOMITING [None]
